FAERS Safety Report 8288592-6 (Version None)
Quarter: 2012Q2

REPORT INFORMATION
  Report Type: 
  Country: None (occurrence: None)
  Receive Date: 20120416
  Receipt Date: 20120411
  Transmission Date: 20120825
  Serious: Yes (Hospitalization)
  Sender: FDA-Public Use
  Company Number: US-MERCK-1112USA00008

PATIENT
  Age: 64 Year
  Sex: Female
  Weight: 69 kg

DRUGS (14)
  1. FOSAMAX [Suspect]
     Indication: OSTEOPENIA
     Route: 048
     Dates: start: 20041201, end: 20060501
  2. AMITRIPTYLINE HYDROCHLORIDE [Concomitant]
     Indication: DEPRESSION
     Route: 048
     Dates: start: 19770101
  3. FOSAMAX PLUS D [Suspect]
     Route: 048
     Dates: start: 20071108, end: 20110103
  4. LEVOXYL [Concomitant]
     Indication: HYPOTHYROIDISM
     Route: 048
     Dates: start: 19960101
  5. PREDNISONE [Concomitant]
     Indication: POLYMYALGIA RHEUMATICA
     Route: 048
     Dates: start: 20030101
  6. FOSAMAX [Suspect]
     Route: 048
     Dates: start: 20110101
  7. VITAMINS (UNSPECIFIED) [Concomitant]
     Route: 048
  8. ALENDRONATE SODIUM [Suspect]
     Indication: OSTEOPENIA
     Route: 048
     Dates: start: 20110110
  9. CALCIUM (UNSPECIFIED) AND VITAMIN D (UNSPECIFIED) [Concomitant]
     Route: 048
     Dates: start: 20030201
  10. FOSAMAX PLUS D [Suspect]
     Indication: OSTEOPENIA
     Route: 048
     Dates: start: 20060302, end: 20071011
  11. VITAMIN E [Concomitant]
     Route: 048
  12. BEXTRA [Concomitant]
     Indication: MYALGIA
     Route: 048
     Dates: start: 20030101, end: 20050101
  13. ASPIRIN [Concomitant]
     Route: 048
     Dates: start: 20030101
  14. VITAMIN B COMPLEX [Concomitant]
     Route: 048

REACTIONS (39)
  - HYPERTENSION [None]
  - TOOTHACHE [None]
  - ANAEMIA [None]
  - FALL [None]
  - HYPERLIPIDAEMIA [None]
  - PAIN IN EXTREMITY [None]
  - OROPHARYNGEAL PAIN [None]
  - BRONCHITIS [None]
  - CLOSTRIDIAL INFECTION [None]
  - VOMITING [None]
  - NAUSEA [None]
  - BLOOD GLUCOSE INCREASED [None]
  - UPPER RESPIRATORY TRACT INFECTION [None]
  - OEDEMA PERIPHERAL [None]
  - SEASONAL ALLERGY [None]
  - KYPHOSIS [None]
  - COUGH [None]
  - DYSPEPSIA [None]
  - HEADACHE [None]
  - GROIN PAIN [None]
  - PYREXIA [None]
  - FEELING ABNORMAL [None]
  - FATIGUE [None]
  - DERMATITIS CONTACT [None]
  - BLOOD DISORDER [None]
  - ADVERSE DRUG REACTION [None]
  - CERUMEN IMPACTION [None]
  - IMPAIRED HEALING [None]
  - PHARYNGITIS [None]
  - ECCHYMOSIS [None]
  - BLOOD CHOLESTEROL INCREASED [None]
  - DRUG HYPERSENSITIVITY [None]
  - ARTHRALGIA [None]
  - INTERVERTEBRAL DISC DEGENERATION [None]
  - INAPPROPRIATE SCHEDULE OF DRUG ADMINISTRATION [None]
  - FEMUR FRACTURE [None]
  - ANXIETY [None]
  - DYSTROPHIC CALCIFICATION [None]
  - MYALGIA [None]
